FAERS Safety Report 9156023 (Version 2)
Quarter: 2013Q2

REPORT INFORMATION
  Report Type: Spontaneous
  Country: US (occurrence: US)
  Receive Date: 20130311
  Receipt Date: 20130401
  Transmission Date: 20140414
  Serious: Yes (Death, Hospitalization)
  Sender: FDA-Public Use
  Company Number: US-BAXTER-2013BAX008615

PATIENT
  Sex: Male

DRUGS (3)
  1. DIANEAL LOW CALCIUM [Suspect]
     Indication: PERITONEAL DIALYSIS
     Route: 033
     Dates: end: 20130224
  2. DIANEAL LOW CALCIUM [Suspect]
     Indication: PERITONEAL DIALYSIS
     Route: 033
     Dates: end: 20130224
  3. ALBUTEROL [Concomitant]
     Indication: DYSPNOEA
     Route: 045

REACTIONS (6)
  - Respiratory failure [Fatal]
  - Cardiac failure congestive [Fatal]
  - Bacteraemia [Fatal]
  - Renal failure chronic [Fatal]
  - Dyspnoea [Unknown]
  - Hypotension [Unknown]
